FAERS Safety Report 25863652 (Version 1)
Quarter: 2025Q3

REPORT INFORMATION
  Report Type: Spontaneous
  Country: IN (occurrence: IN)
  Receive Date: 20250930
  Receipt Date: 20250930
  Transmission Date: 20251021
  Serious: Yes (Other)
  Sender: MSN LABORATORIES PRIVATE LIMITED
  Company Number: IN-MSNLABS-2025MSNLIT02849

PATIENT

DRUGS (4)
  1. BARICITINIB [Suspect]
     Active Substance: BARICITINIB
     Indication: Immune system disorder
     Dosage: 0.4 MG-1 MG
     Route: 065
  2. BARICITINIB [Suspect]
     Active Substance: BARICITINIB
     Route: 065
  3. VORICONAZOLE [Concomitant]
     Active Substance: VORICONAZOLE
     Route: 065
  4. VORICONAZOLE [Concomitant]
     Active Substance: VORICONAZOLE
     Route: 065

REACTIONS (6)
  - Pneumonia [Unknown]
  - Pulmonary tuberculosis [Not Recovered/Not Resolved]
  - Candida infection [Unknown]
  - Influenza [Unknown]
  - Adenovirus infection [Unknown]
  - H3N2 influenza [Unknown]
